FAERS Safety Report 6939152-8 (Version None)
Quarter: 2010Q3

REPORT INFORMATION
  Report Type: 
  Country: None (occurrence: None)
  Receive Date: 20100824
  Receipt Date: 20100816
  Transmission Date: 20110219
  Serious: Yes (Hospitalization, Other)
  Sender: FDA-Public Use
  Company Number: US-PFIZER INC-2010103587

PATIENT
  Sex: Female
  Weight: 73.469 kg

DRUGS (3)
  1. ZOLOFT [Suspect]
     Indication: AGITATION
     Dosage: 50 MG, 1X/DAY
     Route: 048
     Dates: start: 20100101
  2. NORVASC [Concomitant]
     Dosage: 5 MG, 1X/DAY
  3. BENICAR [Concomitant]
     Dosage: 20 MG, UNK

REACTIONS (5)
  - BLOOD PRESSURE DECREASED [None]
  - DYSKINESIA [None]
  - GAIT DISTURBANCE [None]
  - OEDEMA PERIPHERAL [None]
  - TREMOR [None]
